FAERS Safety Report 7950167 (Version 2)
Quarter: 2013Q1

REPORT INFORMATION
  Report Type: Spontaneous
  Country: US (occurrence: None)
  Receive Date: 20110427
  Receipt Date: 20121101
  Transmission Date: 20140127
  Serious: Yes (Hospitalization, Other)
  Sender: FDA-Public Use
  Company Number: 2011MA003911

PATIENT
  Sex: Female
  Weight: 85.82 kg

DRUGS (40)
  1. METOCLOPRAMIDE [Suspect]
     Indication: GASTROOESOPHAGEAL REFLUX DISEASE
     Dosage: 10 MG;AC + HS;UNK
     Dates: start: 200103, end: 20090522
  2. ADVAIR [Concomitant]
  3. ALBUTEROL [Concomitant]
  4. ALPRAZOLAM [Concomitant]
  5. ASPIRINE [Concomitant]
  6. CATAPRES [Concomitant]
  7. CEDAX [Concomitant]
  8. CEFEPIME [Concomitant]
  9. CITRACAL [Concomitant]
  10. CLONIDINE [Concomitant]
  11. COMBIVENT [Concomitant]
  12. COQ10 [Concomitant]
  13. DARVOCET [Concomitant]
  14. DARVOCET-N 100 [Concomitant]
  15. DETROL LA [Concomitant]
  16. FELODIPINE [Concomitant]
  17. GLIPIZIDE [Concomitant]
  18. GLUCOSAMINE [Concomitant]
  19. HYDRALAZINE [Concomitant]
  20. HYDROCHLOROTHIAZIDE [Concomitant]
  21. HYDROCODONE W/ACETAMINOPHEN [Concomitant]
  22. LASIX [Concomitant]
  23. LEVAQUIN [Concomitant]
  24. LIPITOR [Concomitant]
  25. MAXZIDE [Concomitant]
  26. MUCINEX [Concomitant]
  27. PHENERGAN [Concomitant]
  28. POTASSIUM CHLORIDE [Concomitant]
  29. PREDNISONE [Concomitant]
  30. PRILOSEC [Concomitant]
  31. QUININE SULFATE [Concomitant]
  32. REQUIP [Concomitant]
  33. VALTREX [Concomitant]
  34. VIOXX [Concomitant]
  35. VITAMIN D [Concomitant]
  36. XANAX [Concomitant]
  37. ZETIA [Concomitant]
  38. ZITHROMAX [Concomitant]
  39. ZOCOR [Concomitant]
  40. ZOLPIDEM [Concomitant]

REACTIONS (22)
  - Tardive dyskinesia [None]
  - Chorea [None]
  - Extrapyramidal disorder [None]
  - Injury [None]
  - Dyskinesia [None]
  - Emotional disorder [None]
  - Economic problem [None]
  - Pneumonia klebsiella [None]
  - Chronic obstructive pulmonary disease [None]
  - Cataract operation [None]
  - Mitral valve prolapse [None]
  - Hiatus hernia [None]
  - Gastritis [None]
  - Pyelonephritis acute [None]
  - Sepsis [None]
  - Dehydration [None]
  - Hypertension [None]
  - Hypokalaemia [None]
  - Gastrooesophageal reflux disease [None]
  - Anxiety disorder [None]
  - Restless legs syndrome [None]
  - Dyskinesia [None]
